FAERS Safety Report 25738338 (Version 3)
Quarter: 2025Q3

REPORT INFORMATION
  Report Type: Spontaneous
  Country: EU (occurrence: EU)
  Receive Date: 20250829
  Receipt Date: 20250930
  Transmission Date: 20251021
  Serious: No
  Sender: JOHNSON AND JOHNSON
  Company Number: EU-JNJFOC-20250823989

PATIENT
  Sex: Female

DRUGS (2)
  1. SIMPONI [Suspect]
     Active Substance: GOLIMUMAB
     Indication: Product used for unknown indication
     Route: 058
  2. SIMPONI [Suspect]
     Active Substance: GOLIMUMAB
     Indication: Product used for unknown indication
     Route: 058

REACTIONS (2)
  - Product dose omission issue [Unknown]
  - Device leakage [Unknown]
